FAERS Safety Report 10027677 (Version 1)
Quarter: 2014Q1

REPORT INFORMATION
  Report Type: Spontaneous
  Country: US (occurrence: US)
  Receive Date: 20140321
  Receipt Date: 20140321
  Transmission Date: 20141002
  Serious: Yes (Hospitalization)
  Sender: FDA-Public Use
  Company Number: US-BAYER-2014-041472

PATIENT
  Age: 20 Year
  Sex: Female
  Weight: 83.9 kg

DRUGS (6)
  1. YAZ [Suspect]
  2. BACTRIM [Concomitant]
  3. DIFFERIN [Concomitant]
  4. CLINDAMYCIN [Concomitant]
  5. FLAGYL [Concomitant]
     Dosage: 500 [UNITS NOT PROVIDED] TID FOR A WEEK
  6. BENTYL [Concomitant]

REACTIONS (1)
  - Pulmonary embolism [None]
